FAERS Safety Report 20823975 (Version 3)
Quarter: 2022Q3

REPORT INFORMATION
  Report Type: Spontaneous
  Country: CZ (occurrence: CZ)
  Receive Date: 20220513
  Receipt Date: 20220926
  Transmission Date: 20221026
  Serious: Yes (Other)
  Sender: FDA-Public Use
  Company Number: CZ-MYLANLABS-2022M1030142

PATIENT
  Age: 40 Year
  Sex: Male

DRUGS (9)
  1. PACLITAXEL [Suspect]
     Active Substance: PACLITAXEL
     Indication: Teratoma
     Dosage: UNK, 4 X TIP CHEMOTHERAPY
     Route: 065
     Dates: start: 202102, end: 202104
  2. PACLITAXEL [Suspect]
     Active Substance: PACLITAXEL
     Indication: Adenocarcinoma
  3. PACLITAXEL [Suspect]
     Active Substance: PACLITAXEL
     Indication: Testicular malignant teratoma
  4. IFOSFAMIDE [Suspect]
     Active Substance: IFOSFAMIDE
     Indication: Teratoma
     Dosage: UNK, 4 X TIP CHEMOTHERAPY
     Route: 065
     Dates: start: 202102, end: 202104
  5. IFOSFAMIDE [Suspect]
     Active Substance: IFOSFAMIDE
     Indication: Adenocarcinoma
  6. IFOSFAMIDE [Suspect]
     Active Substance: IFOSFAMIDE
     Indication: Testicular malignant teratoma
  7. CISPLATIN [Suspect]
     Active Substance: CISPLATIN
     Indication: Teratoma
     Dosage: UNK, 4 X TIP CHEMOTHERAPY
     Route: 065
     Dates: start: 202102, end: 202104
  8. CISPLATIN [Suspect]
     Active Substance: CISPLATIN
     Indication: Adenocarcinoma
  9. CISPLATIN [Suspect]
     Active Substance: CISPLATIN
     Indication: Testicular malignant teratoma

REACTIONS (5)
  - Thrombocytopenia [Recovered/Resolved]
  - Myelosuppression [Unknown]
  - Anaemia [Recovered/Resolved]
  - Product use in unapproved indication [Unknown]
  - Off label use [Unknown]
